FAERS Safety Report 6087646-2 (Version None)
Quarter: 2009Q1

REPORT INFORMATION
  Report Type: 
  Country: None (occurrence: None)
  Receive Date: 20090223
  Receipt Date: 20090219
  Transmission Date: 20090719
  Serious: Yes (Disabling)
  Sender: FDA-Public Use
  Company Number: MY-BRISTOL-MYERS SQUIBB COMPANY-14514418

PATIENT
  Sex: Male

DRUGS (1)
  1. COAPROVEL [Suspect]
     Indication: HYPERTENSION
     Route: 048

REACTIONS (1)
  - OTOTOXICITY [None]
